FAERS Safety Report 6438786-7 (Version None)
Quarter: 2009Q4

REPORT INFORMATION
  Report Type: 
  Country: None (occurrence: None)
  Receive Date: 20091113
  Receipt Date: 20091103
  Transmission Date: 20100525
  Serious: No
  Sender: FDA-Public Use
  Company Number: US-JNJFOC-20091101323

PATIENT
  Sex: Male
  Weight: 68.04 kg

DRUGS (3)
  1. DURAGESIC-100 [Suspect]
     Indication: PAIN
     Route: 062
     Dates: start: 20090301
  2. PERCOCET [Concomitant]
     Indication: PAIN
     Dosage: 10/325 AS NEEDED
     Route: 048
  3. XANAX [Concomitant]
     Route: 048

REACTIONS (3)
  - DEVICE LEAKAGE [None]
  - INCORRECT DRUG ADMINISTRATION RATE [None]
  - PRODUCT QUALITY ISSUE [None]
